FAERS Safety Report 16238674 (Version 1)
Quarter: 2019Q2

REPORT INFORMATION
  Report Type: Spontaneous
  Country: US (occurrence: US)
  Receive Date: 20190425
  Receipt Date: 20190425
  Transmission Date: 20190711
  Serious: No
  Sender: FDA-Public Use
  Company Number: US-009507513-1904USA009481

PATIENT
  Sex: Female

DRUGS (5)
  1. PREGNYL [Suspect]
     Active Substance: CHORIOGONADOTROPIN ALFA
     Indication: GENITAL DISORDER FEMALE
     Dosage: 10,000 UNITS
     Route: 030
     Dates: start: 20190416
  2. FOLLISTIM [Suspect]
     Active Substance: FOLLITROPIN
     Dosage: UNK
  3. PROGESTERONE. [Concomitant]
     Active Substance: PROGESTERONE
  4. FOLLISTIM [Suspect]
     Active Substance: FOLLITROPIN
     Indication: GENITAL DISORDER FEMALE
     Dosage: 33-300 UNITS
     Route: 058
     Dates: start: 20190410
  5. METFORMIN [Concomitant]
     Active Substance: METFORMIN HYDROCHLORIDE

REACTIONS (1)
  - Nausea [Unknown]

NARRATIVE: CASE EVENT DATE: 2019
